FAERS Safety Report 7631903-2 (Version None)
Quarter: 2011Q3

REPORT INFORMATION
  Report Type: 
  Country: None (occurrence: None)
  Receive Date: 20110725
  Receipt Date: 20110506
  Transmission Date: 20111222
  Serious: Yes (Other)
  Sender: FDA-Public Use
  Company Number: US-BRISTOL-MYERS SQUIBB COMPANY-15724842

PATIENT
  Age: 58 Year
  Sex: Male
  Weight: 101 kg

DRUGS (14)
  1. ASPIRIN [Concomitant]
  2. LEXAPRO [Concomitant]
  3. SINGULAIR [Concomitant]
  4. ALTACE [Concomitant]
  5. ADVAIR DISKUS 100/50 [Concomitant]
  6. TOPROL-XL [Concomitant]
  7. CRESTOR [Concomitant]
  8. ZETIA [Concomitant]
  9. ALPRAZOLAM [Concomitant]
  10. NIASPAN [Concomitant]
  11. PLAVIX [Concomitant]
  12. COUMADIN [Suspect]
  13. CIALIS [Concomitant]
  14. FISH OIL [Concomitant]

REACTIONS (1)
  - INTERNATIONAL NORMALISED RATIO FLUCTUATION [None]
